FAERS Safety Report 8988598 (Version 1)
Quarter: 2012Q4

REPORT INFORMATION
  Report Type: 
  Country: IT (occurrence: IT)
  Receive Date: 20121228
  Receipt Date: 20121228
  Transmission Date: 20130627
  Serious: Yes (Other)
  Sender: FDA-Public Use
  Company Number: IT-PFIZER INC-2012331106

PATIENT
  Age: 33 Year
  Sex: Female

DRUGS (2)
  1. XANAX [Suspect]
     Indication: DEPRESSION
     Dosage: 3 Gtt, 1x/day
     Route: 048
     Dates: start: 20121205, end: 20121207
  2. CIPRALEX [Suspect]
     Indication: DEPRESSION
     Dosage: 10 Gtt, 1x/day
     Route: 048
     Dates: start: 20121205, end: 20121207

REACTIONS (1)
  - Supraventricular tachycardia [Recovering/Resolving]
